FAERS Safety Report 21980487 (Version 2)
Quarter: 2023Q1

REPORT INFORMATION
  Report Type: Spontaneous
  Country: US (occurrence: US)
  Receive Date: 20230211
  Receipt Date: 20230221
  Transmission Date: 20230417
  Serious: Yes (Life-Threatening, Hospitalization, Other)
  Sender: FDA-Public Use
  Company Number: US-MLMSERVICE-20230127-4065598-1

PATIENT
  Age: 67 Year
  Sex: Female

DRUGS (2)
  1. LIDOCAINE [Suspect]
     Active Substance: LIDOCAINE
     Indication: Osteoarthritis
     Dosage: UNK
     Route: 065
  2. KENALOG [Suspect]
     Active Substance: TRIAMCINOLONE ACETONIDE
     Indication: Osteoarthritis
     Dosage: UNK
     Route: 065

REACTIONS (2)
  - Kounis syndrome [Recovered/Resolved]
  - Injection related reaction [Recovered/Resolved]
